FAERS Safety Report 4648691-4 (Version None)
Quarter: 2005Q2

REPORT INFORMATION
  Report Type: 
  Country: None (occurrence: None)
  Receive Date: 20050427
  Receipt Date: 20050418
  Transmission Date: 20051028
  Serious: Yes (Hospitalization)
  Sender: FDA-Public Use
  Company Number: 2005-03-1497

PATIENT
  Age: 40 Year
  Sex: Female
  Weight: 97 kg

DRUGS (8)
  1. INTRON A [Suspect]
     Indication: METASTATIC MALIGNANT MELANOMA
     Dosage: 3 MIU SC TIW
     Dates: start: 20020801, end: 20031201
  2. INTRON A [Suspect]
     Indication: METASTATIC MALIGNANT MELANOMA
     Dosage: 3 MIU SC TIW
     Dates: start: 20040301, end: 20040501
  3. INTRON A [Suspect]
     Indication: METASTATIC MALIGNANT MELANOMA
     Dosage: 3 MIU SC TIW
     Dates: start: 20020801
  4. INTRON A [Suspect]
     Indication: METASTATIC MALIGNANT MELANOMA
     Dosage: 3 MIU SC TIW
     Dates: start: 20040501
  5. DACARBAZINE [Suspect]
     Indication: METASTATIC MALIGNANT MELANOMA
     Dosage: 850 MG QMTH INTRAVENOUS
     Route: 042
     Dates: start: 20040701, end: 20040209
  6. DACARBAZINE [Suspect]
     Indication: METASTATIC MALIGNANT MELANOMA
     Dosage: 850 MG QMTH INTRAVENOUS
     Route: 042
     Dates: start: 20040701
  7. DACARBAZINE [Suspect]
     Indication: METASTATIC MALIGNANT MELANOMA
     Dosage: 850 MG QMTH INTRAVENOUS
     Route: 042
     Dates: start: 20050301
  8. GRANISETRON INJECTABLE [Concomitant]

REACTIONS (3)
  - ENTEROCOLITIS HAEMORRHAGIC [None]
  - INTESTINAL ISCHAEMIA [None]
  - SIGMOIDITIS [None]
